FAERS Safety Report 21016943 (Version 2)
Quarter: 2023Q4

REPORT INFORMATION
  Report Type: Spontaneous
  Country: DE (occurrence: DE)
  Receive Date: 20220628
  Receipt Date: 20231106
  Transmission Date: 20240110
  Serious: Yes (Other)
  Sender: FDA-Public Use
  Company Number: None

PATIENT
  Sex: Male

DRUGS (3)
  1. CYTOTEC [Interacting]
     Active Substance: MISOPROSTOL
     Indication: Foetal heart rate abnormal
     Dosage: MULTIPLE APPLICATIONS
     Route: 064
     Dates: start: 20081213, end: 20081214
  2. CYTOTEC [Interacting]
     Active Substance: MISOPROSTOL
     Indication: Labour induction
  3. AMOXICILLIN [Interacting]
     Active Substance: AMOXICILLIN
     Route: 064

REACTIONS (9)
  - Foetal exposure during delivery [Unknown]
  - Birth trauma [Not Recovered/Not Resolved]
  - Insomnia [Not Recovered/Not Resolved]
  - Crying [Recovered/Resolved]
  - Pain [Not Recovered/Not Resolved]
  - Decreased immune responsiveness [Not Recovered/Not Resolved]
  - Infant irritability [Not Recovered/Not Resolved]
  - Screaming [Recovered/Resolved]
  - Drug interaction [Unknown]

NARRATIVE: CASE EVENT DATE: 20080101
